FAERS Safety Report 16122755 (Version 1)
Quarter: 2019Q2

REPORT INFORMATION
  Report Type: Spontaneous
  Country: US (occurrence: US)
  Receive Date: 20190327
  Receipt Date: 20190327
  Transmission Date: 20190711
  Serious: No
  Sender: FDA-Public Use
  Company Number: US-BAYER-2019-051981

PATIENT
  Age: 40 Year
  Sex: Female
  Weight: 68 kg

DRUGS (7)
  1. ALKA-SELTZER HEARTBURN RELIEF GUMMIES (TRICALCIUM PHOSPHATE) [Suspect]
     Active Substance: DIETARY SUPPLEMENT\TRICALCIUM PHOSPHATE
     Dosage: UNK , 3-4 GUMMIES AS NEEDED
     Route: 048
  2. TUMS [Suspect]
     Active Substance: CALCIUM CARBONATE
     Dosage: UNK
  3. EX-LAX [PHENOLPHTHALEIN] [Suspect]
     Active Substance: PHENOLPHTHALEIN
     Dosage: UNK
  4. MIRALAX [Suspect]
     Active Substance: POLYETHYLENE GLYCOL 3350
     Indication: GASTROINTESTINAL INFECTION
     Dosage: UNK , 1 CAPFUL EVERY MORNING
     Route: 048
  5. ONE A DAY WOMEN^S [Concomitant]
     Active Substance: MINERALS\VITAMINS
  6. IBUPROFEN. [Concomitant]
     Active Substance: IBUPROFEN
     Dosage: UNK
  7. ALKA-SELTZER HEARTBURN PLUS GAS RELIEFCHEWS TROPICAL PUNCH [Suspect]
     Active Substance: CALCIUM CARBONATE\DIMETHICONE
     Indication: ABDOMINAL DISCOMFORT
     Dosage: 2 DF
     Route: 048

REACTIONS (3)
  - Incorrect dose administered [Unknown]
  - Product use issue [Unknown]
  - Product use in unapproved indication [Unknown]
